FAERS Safety Report 7178091-7 (Version None)
Quarter: 2010Q4

REPORT INFORMATION
  Report Type: 
  Country: None (occurrence: None)
  Receive Date: 20101220
  Receipt Date: 20101215
  Transmission Date: 20110411
  Serious: Yes (Hospitalization, Other)
  Sender: FDA-Public Use
  Company Number: A0899921A

PATIENT
  Age: 10 Year
  Sex: Male

DRUGS (4)
  1. ARRANON [Suspect]
     Dosage: 780MG SINGLE DOSE
     Route: 042
     Dates: start: 20101116, end: 20101116
  2. CYTARABINE [Concomitant]
     Route: 037
  3. CYCLOPHOSPHAMIDE [Concomitant]
  4. MERCAPTOPURINE [Concomitant]

REACTIONS (3)
  - CEREBRAL INFARCTION [None]
  - CONVULSION [None]
  - REVERSIBLE POSTERIOR LEUKOENCEPHALOPATHY SYNDROME [None]
